FAERS Safety Report 7837894-3 (Version None)
Quarter: 2011Q4

REPORT INFORMATION
  Report Type: 
  Country: None (occurrence: None)
  Receive Date: 20111024
  Receipt Date: 20111014
  Transmission Date: 20120403
  Serious: Yes (Other)
  Sender: FDA-Public Use
  Company Number: US-ASTRAZENECA-2011SE61998

PATIENT
  Age: 51 Year
  Sex: Male
  Weight: 113.4 kg

DRUGS (5)
  1. KLONOPIN [Concomitant]
     Indication: ANTIDEPRESSANT THERAPY
     Route: 048
  2. LOTENSIN [Concomitant]
     Indication: HYPERTENSION
     Dosage: 20/12.5 OID
     Route: 048
  3. SEROQUEL XR [Suspect]
     Indication: SLEEP DISORDER
     Route: 048
     Dates: start: 20100101
  4. CELEXA [Concomitant]
     Indication: ANTIDEPRESSANT THERAPY
     Route: 048
  5. METFORMIN HCL [Concomitant]
     Indication: DIABETES MELLITUS
     Route: 048

REACTIONS (3)
  - MULTIPLE FRACTURES [None]
  - ROAD TRAFFIC ACCIDENT [None]
  - OFF LABEL USE [None]
